FAERS Safety Report 7582841-5 (Version None)
Quarter: 2011Q2

REPORT INFORMATION
  Report Type: 
  Country: None (occurrence: None)
  Receive Date: 20110627
  Receipt Date: 20110627
  Transmission Date: 20111010
  Serious: No
  Sender: FDA-Public Use
  Company Number: None

PATIENT
  Age: 68 Year
  Sex: Female
  Weight: 68.0396 kg

DRUGS (1)
  1. CRESTOR [Suspect]
     Indication: BLOOD CHOLESTEROL INCREASED
     Dosage: 10MG 1 TAB EVERY DAY PO
     Route: 048
     Dates: start: 20110614

REACTIONS (7)
  - ARTHRALGIA [None]
  - PYREXIA [None]
  - NOCTURIA [None]
  - MYALGIA [None]
  - ASTHENIA [None]
  - MUSCLE SPASMS [None]
  - HEADACHE [None]
